FAERS Safety Report 9593666 (Version 1)
Quarter: 2013Q3

REPORT INFORMATION
  Report Type: Spontaneous
  Country: US (occurrence: None)
  Receive Date: 20130930
  Receipt Date: 20130930
  Transmission Date: 20140515
  Serious: No
  Sender: FDA-Public Use
  Company Number: 1000045672

PATIENT
  Age: 52 Year
  Sex: Female

DRUGS (7)
  1. METHADONE (METHADONE)  (10 MILLIGRAM) (METHADONE) [Concomitant]
  2. DEXILANT (DEXLANSOPRAZOLE) (DEXLANSOPRAZOLE) [Concomitant]
  3. TOVIAZ (FESOTERODINE FUMARATE) (FESOTERODINE FUMARATE) [Concomitant]
  4. PEPCID AC (FAMOTIDINE) (FAMOTIDINE) [Concomitant]
  5. LINZESS [Suspect]
     Indication: CONSTIPATION
     Route: 048
     Dates: start: 201304
  6. ELAVIL (AMITRIPTYLINE) (AMITRIPTYLINE) [Concomitant]
  7. EFFEXOR (VENLAFAXINE HYDROCHLORIDE) (VENLAFAINE HYDROCHLORIDE) [Concomitant]

REACTIONS (1)
  - Drug ineffective [None]
